FAERS Safety Report 19710740 (Version 2)
Quarter: 2021Q3

REPORT INFORMATION
  Report Type: Spontaneous
  Country: US (occurrence: US)
  Receive Date: 20210816
  Receipt Date: 20210902
  Transmission Date: 20211014
  Serious: No
  Sender: FDA-Public Use
  Company Number: US-ASTRAZENECA-2021A634869

PATIENT
  Age: 89 Year
  Sex: Female
  Weight: 53.1 kg

DRUGS (2)
  1. SYMBICORT [Suspect]
     Active Substance: BUDESONIDE\FORMOTEROL FUMARATE DIHYDRATE
     Indication: WHEEZING
     Dosage: TAKING ONE PUFF ONCE A DAY
     Route: 055
     Dates: start: 20210724
  2. SYMBICORT [Suspect]
     Active Substance: BUDESONIDE\FORMOTEROL FUMARATE DIHYDRATE
     Indication: WHEEZING
     Dosage: 160/4.5 TWO TIMES A DAY
     Route: 055
     Dates: start: 20210331, end: 20210414

REACTIONS (5)
  - Intentional device misuse [Recovered/Resolved]
  - Dizziness [Unknown]
  - Product use issue [Not Recovered/Not Resolved]
  - Off label use [Not Recovered/Not Resolved]
  - Body height decreased [Not Recovered/Not Resolved]
